FAERS Safety Report 9825191 (Version 1)
Quarter: 2013Q4

REPORT INFORMATION
  Report Type: Spontaneous
  Country: US (occurrence: None)
  Receive Date: 20131028
  Receipt Date: 20131028
  Transmission Date: 20140711
  Serious: No
  Sender: FDA-Public Use
  Company Number: 2013US001765

PATIENT
  Age: 57 Year
  Sex: Female
  Weight: 78 kg

DRUGS (6)
  1. ICLUSIG [Suspect]
     Indication: CHRONIC MYELOID LEUKAEMIA
     Route: 048
     Dates: end: 201305
  2. XANAX (ALPRAZOLAM) [Concomitant]
  3. LABETALOL (LABETOL) [Concomitant]
  4. HYDRALAZINE (HYDRALAZINE) [Concomitant]
  5. OMEGA (CONVALLARIA MAJALIS, CRATAEGUS LAEVIGATA, PROXPHYLLINE) [Concomitant]
  6. VITAMINS ONGOIN [Concomitant]

REACTIONS (1)
  - Lipase increased [None]
